FAERS Safety Report 7841721-8 (Version None)
Quarter: 2011Q4

REPORT INFORMATION
  Report Type: 
  Country: None (occurrence: None)
  Receive Date: 20111025
  Receipt Date: 20111014
  Transmission Date: 20120403
  Serious: Yes (Hospitalization)
  Sender: FDA-Public Use
  Company Number: CA-JNJFOC-20111008885

PATIENT
  Sex: Female
  Weight: 79 kg

DRUGS (2)
  1. REMICADE [Suspect]
     Indication: PSORIATIC ARTHROPATHY
     Route: 042
     Dates: start: 20060901
  2. REMICADE [Suspect]
     Route: 042
     Dates: start: 20110830, end: 20110830

REACTIONS (3)
  - PANCREATITIS [None]
  - INFUSION SITE THROMBOSIS [None]
  - INFUSION SITE INFECTION [None]
